FAERS Safety Report 5902067-8 (Version None)
Quarter: 2008Q3

REPORT INFORMATION
  Report Type: 
  Country: None (occurrence: None)
  Receive Date: 20080929
  Receipt Date: 20080917
  Transmission Date: 20090109
  Serious: Yes (Hospitalization)
  Sender: FDA-Public Use
  Company Number: DE-PFIZER INC-2008011800

PATIENT
  Sex: Male
  Weight: 103 kg

DRUGS (2)
  1. CHANTIX [Suspect]
     Indication: SMOKING CESSATION THERAPY
     Route: 048
     Dates: start: 20080109, end: 20080116
  2. GEVILON [Suspect]
     Indication: TYPE IV HYPERLIPIDAEMIA
     Route: 048
     Dates: start: 20071001, end: 20080101

REACTIONS (4)
  - AUTOIMMUNE HEPATITIS [None]
  - INSOMNIA [None]
  - NAUSEA [None]
  - VOMITING [None]
